FAERS Safety Report 15701039 (Version 1)
Quarter: 2018Q4

REPORT INFORMATION
  Report Type: Spontaneous
  Country: BY (occurrence: BY)
  Receive Date: 20181207
  Receipt Date: 20181207
  Transmission Date: 20190205
  Serious: Yes (Other)
  Sender: FDA-Public Use
  Company Number: BY-009507513-1812BLR002440

PATIENT
  Age: 55 Year
  Sex: Male
  Weight: 56.6 kg

DRUGS (9)
  1. CLOFAZIMINE [Suspect]
     Active Substance: CLOFAZIMINE
     Indication: TUBERCULOSIS
     Dosage: 100 (UNITS NOT SPECIFIED), QD
     Route: 048
     Dates: start: 20180222
  2. CAPREOMYCIN [Suspect]
     Active Substance: CAPREOMYCIN
     Indication: TUBERCULOSIS
     Dosage: 1000 (UNITS NOT SPECIFIED), QD
     Route: 030
     Dates: start: 20180222, end: 20180907
  3. IMIPENEM AND CILASTATIN [Suspect]
     Active Substance: CILASTATIN SODIUM\IMIPENEM
     Indication: TUBERCULOSIS
     Dosage: 2000 UNK, QD
     Route: 042
     Dates: start: 20180222
  4. PYRIDOXINE [Concomitant]
     Active Substance: PYRIDOXINE
     Dosage: 50 MILLIGRAM
     Dates: start: 20180222
  5. DELAMANID [Suspect]
     Active Substance: DELAMANID
     Indication: TUBERCULOSIS
     Dosage: 200 (UNITS NOT SPECIFIED), QD
     Route: 048
     Dates: start: 20180222
  6. MOXIFLOXACIN. [Suspect]
     Active Substance: MOXIFLOXACIN
     Indication: TUBERCULOSIS
     Dosage: 400 (UNITS NOT SPECIFIED), QD
     Route: 048
     Dates: start: 20180222
  7. AMOXICILLIN SODIUM (+) CLAVULANATE POTASSIUM [Suspect]
     Active Substance: AMOXICILLIN\CLAVULANATE POTASSIUM
     Indication: TUBERCULOSIS
     Dosage: 2500 (UNITS NOT SPECIFIED), QD
     Route: 048
     Dates: start: 20180222
  8. LINEZOLID. [Suspect]
     Active Substance: LINEZOLID
     Indication: TUBERCULOSIS
     Dosage: 600 (UNITS NOT SPECIFIED), QD
     Route: 048
     Dates: start: 20180222
  9. OMEPRAZOLE. [Concomitant]
     Active Substance: OMEPRAZOLE
     Dosage: 20 MILLIGRAM
     Dates: start: 20180222

REACTIONS (5)
  - Decreased appetite [Unknown]
  - Platelet count decreased [Unknown]
  - Nephropathy toxic [Not Recovered/Not Resolved]
  - Creatinine renal clearance decreased [Unknown]
  - Asthenia [Unknown]

NARRATIVE: CASE EVENT DATE: 2018
